FAERS Safety Report 19696817 (Version 1)
Quarter: 2021Q3

REPORT INFORMATION
  Report Type: Spontaneous
  Country: FR (occurrence: FR)
  Receive Date: 20210813
  Receipt Date: 20210813
  Transmission Date: 20211014
  Serious: Yes (Hospitalization)
  Sender: FDA-Public Use
  Company Number: FR-ACCORD-235307

PATIENT
  Age: 75 Year
  Sex: Female

DRUGS (3)
  1. KEYTRUDA [Suspect]
     Active Substance: PEMBROLIZUMAB
     Indication: SARCOMATOID CARCINOMA
     Route: 042
     Dates: start: 20210115, end: 202104
  2. ZENTIVA [PEMETREXED] [Suspect]
     Active Substance: PEMETREXED
     Indication: SARCOMATOID CARCINOMA
     Route: 042
     Dates: start: 20210115, end: 202104
  3. CARBOPLATIN ACOORD [Suspect]
     Active Substance: CARBOPLATIN
     Indication: SARCOMATOID CARCINOMA
     Route: 042
     Dates: start: 20210115, end: 202104

REACTIONS (2)
  - Eosinophilic pneumonia [Not Recovered/Not Resolved]
  - Off label use [Unknown]

NARRATIVE: CASE EVENT DATE: 20210409
